FAERS Safety Report 18664687 (Version 1)
Quarter: 2020Q4

REPORT INFORMATION
  Report Type: Spontaneous
  Country: JP (occurrence: JP)
  Receive Date: 20201225
  Receipt Date: 20201225
  Transmission Date: 20210114
  Serious: Yes (Other)
  Sender: FDA-Public Use
  Company Number: NVSJ2020JP014142

PATIENT
  Age: 60 Year
  Sex: Female

DRUGS (1)
  1. ENERZAIR [Suspect]
     Active Substance: GLYCOPYRROLATE\INDACATEROL\MOMETASONE FUROATE
     Indication: ASTHMA
     Dosage: UNK, 1DF: INDACATEROL 150UG, GLYCOPYRRONIUM 50UG, MOMETASONE FURANCARBOXYLIC ACID ESTER 160UG
     Route: 055

REACTIONS (1)
  - Pneumonia [Recovering/Resolving]
